FAERS Safety Report 10170832 (Version 1)
Quarter: 2014Q2

REPORT INFORMATION
  Report Type: Spontaneous
  Country: CA (occurrence: CA)
  Receive Date: 20140514
  Receipt Date: 20140514
  Transmission Date: 20141212
  Serious: Yes (Other)
  Sender: FDA-Public Use
  Company Number: CA-ROCHE-1397394

PATIENT
  Sex: Female

DRUGS (19)
  1. HERCEPTIN [Suspect]
     Indication: BREAST CANCER
     Route: 042
     Dates: start: 201301, end: 201403
  2. DOCETAXOL [Suspect]
     Indication: PRODUCT USED FOR UNKNOWN INDICATION
     Route: 065
     Dates: start: 201309, end: 201403
  3. VINORELBINE [Suspect]
     Indication: PRODUCT USED FOR UNKNOWN INDICATION
     Route: 065
     Dates: start: 201301, end: 201309
  4. FENTANYL [Suspect]
     Indication: PRODUCT USED FOR UNKNOWN INDICATION
     Route: 065
  5. PERCOCET [Concomitant]
     Dosage: 15 YEARS
     Route: 065
  6. CYMBALTA [Concomitant]
     Route: 065
  7. ASA [Concomitant]
     Dosage: ASA 81
     Route: 065
  8. RAMIPRIL [Concomitant]
  9. TECTA [Concomitant]
  10. METOPROLOL [Concomitant]
  11. WELLBUTRIN XL [Concomitant]
  12. NOVO-RISEDRONATE [Concomitant]
  13. ACTONEL [Concomitant]
  14. ATORVASTATIN [Concomitant]
  15. ZOPICLONE [Concomitant]
  16. CLONAZEPAM [Concomitant]
     Route: 065
  17. METOCLOPRAMIDE [Concomitant]
     Route: 065
  18. CORTISONE [Concomitant]
     Route: 065
  19. LORAZEPAM [Concomitant]
     Route: 065

REACTIONS (2)
  - Chemical injury [Unknown]
  - Dizziness [Unknown]
